FAERS Safety Report 9520492 (Version 2)
Quarter: 2013Q3

REPORT INFORMATION
  Report Type: Spontaneous
  Country: US (occurrence: US)
  Receive Date: 20130913
  Receipt Date: 20130913
  Transmission Date: 20140515
  Serious: Yes (Hospitalization, Other)
  Sender: FDA-Public Use
  Company Number: US-AMGEN-USASP2013010514

PATIENT
  Age: 67 Year
  Sex: Female
  Weight: 68.02 kg

DRUGS (13)
  1. ENBREL [Suspect]
     Indication: RHEUMATOID ARTHRITIS
     Dosage: 50 MG, QWK
     Route: 058
     Dates: start: 19981101
  2. ALBUTEROL                          /00139501/ [Concomitant]
     Dosage: 90 MUG, UNK
  3. OCUVITE                            /01053801/ [Concomitant]
     Dosage: UNK
  4. HYDROCHLOROTH [Concomitant]
     Dosage: 12.5 MG, UNK
  5. TOPROL [Concomitant]
     Dosage: 25 MG, UNK
  6. POTASSIUM CHLORIDE [Concomitant]
     Dosage: 10 MEQ, UNK
  7. SALSALATE [Concomitant]
     Dosage: 500 MG, UNK
  8. VITAMIN C                          /00008001/ [Concomitant]
     Dosage: 500 MG, UNK
  9. CALCIUM [Concomitant]
     Dosage: 500 CHW/D
  10. CLARITIN                           /00413701/ [Concomitant]
     Dosage: 10 MG, UNK
  11. METAMUCIL                          /00029101/ [Concomitant]
     Dosage: POW 28%
  12. OMEPRAZOLE [Concomitant]
     Dosage: 10 MG, UNK
  13. METHOTREXATE [Concomitant]
     Dosage: 25MG IM/ 1 CC WEEKLY
     Route: 030

REACTIONS (13)
  - Cholelithiasis [Unknown]
  - Pancreatitis [Recovered/Resolved]
  - Diverticulitis [Unknown]
  - Hypertension [Unknown]
  - Hip arthroplasty [Recovered/Resolved]
  - Weight decreased [Unknown]
  - Hernia [Unknown]
  - Macular degeneration [Not Recovered/Not Resolved]
  - Visual acuity reduced [Not Recovered/Not Resolved]
  - Gastrooesophageal reflux disease [Unknown]
  - Gastrointestinal disorder [Unknown]
  - Thyroid disorder [Unknown]
  - Cataract [Unknown]
